FAERS Safety Report 10147066 (Version 1)
Quarter: 2014Q2

REPORT INFORMATION
  Report Type: Spontaneous
  Country: US (occurrence: None)
  Receive Date: 20140430
  Receipt Date: 20140430
  Transmission Date: 20141212
  Serious: Yes (Hospitalization)
  Sender: FDA-Public Use
  Company Number: None

PATIENT
  Age: 29 Year
  Sex: Male

DRUGS (9)
  1. AZITHROMYCIN [Suspect]
     Indication: PNEUMONIA
     Route: 042
     Dates: start: 20140102, end: 20140104
  2. HEPARIN [Concomitant]
  3. ACETAMINOPHEN [Concomitant]
  4. VANCOMYCIN [Concomitant]
  5. DOBUTAMINE [Concomitant]
  6. FENTANYL [Concomitant]
  7. LORAZEPAM [Concomitant]
  8. EPOPROSTENOL [Concomitant]
  9. PIPERACILLIN/TAZOBACTAM [Concomitant]

REACTIONS (2)
  - Neurogenic shock [None]
  - Cardio-respiratory arrest [None]
